FAERS Safety Report 7268835-8 (Version None)
Quarter: 2011Q1

REPORT INFORMATION
  Report Type: 
  Country: None (occurrence: None)
  Receive Date: 20110201
  Receipt Date: 20110127
  Transmission Date: 20110831
  Serious: Yes (Other)
  Sender: FDA-Public Use
  Company Number: US-PFIZER INC-2011020140

PATIENT
  Sex: Male
  Weight: 126.98 kg

DRUGS (2)
  1. ZOLOFT [Suspect]
     Indication: BIPOLAR I DISORDER
     Dosage: 100 MG, 1X/DAY
     Route: 048
     Dates: start: 19990101
  2. GEODON [Suspect]
     Indication: SCHIZOPHRENIA
     Dosage: 120 MG, 1X/DAY
     Route: 048
     Dates: start: 20060101

REACTIONS (1)
  - TARDIVE DYSKINESIA [None]
